FAERS Safety Report 25219990 (Version 1)
Quarter: 2025Q2

REPORT INFORMATION
  Report Type: Spontaneous
  Country: US (occurrence: US)
  Receive Date: 20250421
  Receipt Date: 20250421
  Transmission Date: 20250716
  Serious: Yes (Death, Other)
  Sender: MYLAN
  Company Number: US-MYLANLABS-2025M1033455

PATIENT
  Age: 18 Year
  Sex: Female

DRUGS (24)
  1. XANAX [Suspect]
     Active Substance: ALPRAZOLAM
     Indication: Product used for unknown indication
  2. XANAX [Suspect]
     Active Substance: ALPRAZOLAM
     Route: 065
  3. XANAX [Suspect]
     Active Substance: ALPRAZOLAM
     Route: 065
  4. XANAX [Suspect]
     Active Substance: ALPRAZOLAM
  5. CANNABIS SATIVA SUBSP. INDICA TOP [Concomitant]
     Active Substance: CANNABIS SATIVA SUBSP. INDICA TOP
  6. CANNABIS SATIVA SUBSP. INDICA TOP [Concomitant]
     Active Substance: CANNABIS SATIVA SUBSP. INDICA TOP
     Route: 065
  7. CANNABIS SATIVA SUBSP. INDICA TOP [Concomitant]
     Active Substance: CANNABIS SATIVA SUBSP. INDICA TOP
     Route: 065
  8. CANNABIS SATIVA SUBSP. INDICA TOP [Concomitant]
     Active Substance: CANNABIS SATIVA SUBSP. INDICA TOP
  9. OXYCODONE [Concomitant]
     Active Substance: OXYCODONE
  10. OXYCODONE [Concomitant]
     Active Substance: OXYCODONE
     Route: 065
  11. OXYCODONE [Concomitant]
     Active Substance: OXYCODONE
     Route: 065
  12. OXYCODONE [Concomitant]
     Active Substance: OXYCODONE
  13. PERCOCET [Concomitant]
     Active Substance: ACETAMINOPHEN\OXYCODONE HYDROCHLORIDE
  14. PERCOCET [Concomitant]
     Active Substance: ACETAMINOPHEN\OXYCODONE HYDROCHLORIDE
     Route: 065
  15. PERCOCET [Concomitant]
     Active Substance: ACETAMINOPHEN\OXYCODONE HYDROCHLORIDE
     Route: 065
  16. PERCOCET [Concomitant]
     Active Substance: ACETAMINOPHEN\OXYCODONE HYDROCHLORIDE
  17. COCAINE [Concomitant]
     Active Substance: COCAINE
  18. COCAINE [Concomitant]
     Active Substance: COCAINE
     Route: 065
  19. COCAINE [Concomitant]
     Active Substance: COCAINE
     Route: 065
  20. COCAINE [Concomitant]
     Active Substance: COCAINE
  21. FENTANYL [Concomitant]
     Active Substance: FENTANYL
  22. FENTANYL [Concomitant]
     Active Substance: FENTANYL
     Route: 065
  23. FENTANYL [Concomitant]
     Active Substance: FENTANYL
     Route: 065
  24. FENTANYL [Concomitant]
     Active Substance: FENTANYL

REACTIONS (2)
  - Toxicity to various agents [Fatal]
  - Drug abuse [Unknown]
